FAERS Safety Report 9731280 (Version 1)
Quarter: 2013Q4

REPORT INFORMATION
  Report Type: Spontaneous
  Country: FR (occurrence: FR)
  Receive Date: 20131205
  Receipt Date: 20131205
  Transmission Date: 20140711
  Serious: Yes (Hospitalization)
  Sender: FDA-Public Use
  Company Number: FR-009507513-1311FRA011102

PATIENT
  Age: 67 Year
  Sex: Female

DRUGS (7)
  1. TIENAM 500MG/500MG, POUDRE POUR PERFUSION [Suspect]
     Dosage: UNK
     Route: 042
     Dates: start: 20130907, end: 20130930
  2. HYPNOVEL [Suspect]
     Dosage: UNK
     Route: 042
     Dates: start: 20130925, end: 20130927
  3. EUPANTOL [Suspect]
     Dosage: UNK
     Route: 042
     Dates: end: 20131016
  4. TRIFLUCAN [Suspect]
     Dosage: UNK
     Route: 048
     Dates: start: 20130907, end: 20131006
  5. VANCOMYCIN [Suspect]
     Dosage: UNK
     Route: 042
     Dates: start: 20130926, end: 20131012
  6. SUFENTA [Suspect]
     Dosage: UNK
     Route: 042
     Dates: start: 20130924, end: 20131006
  7. NOREPINEPHRINE [Suspect]
     Dosage: UNK
     Route: 042
     Dates: start: 20130907, end: 20131006

REACTIONS (4)
  - Gamma-glutamyltransferase increased [Recovering/Resolving]
  - Rash [Recovered/Resolved]
  - Eosinophilia [Recovered/Resolved]
  - Blood alkaline phosphatase increased [Recovered/Resolved]
